FAERS Safety Report 8227461-4 (Version None)
Quarter: 2012Q1

REPORT INFORMATION
  Report Type: 
  Country: None (occurrence: None)
  Receive Date: 20120322
  Receipt Date: 20120314
  Transmission Date: 20120608
  Serious: Yes (Hospitalization, Other)
  Sender: FDA-Public Use
  Company Number: US-BAYER-2012-019021

PATIENT
  Age: 38 Year
  Sex: Female

DRUGS (8)
  1. VICODIN [Concomitant]
  2. NORCO [Concomitant]
     Dosage: UNK
     Dates: start: 20081014
  3. LEVAQUIN [Concomitant]
     Dosage: UNK
     Dates: start: 20080822
  4. IBUPROFEN [Concomitant]
     Dosage: 600 MG, UNK
     Dates: start: 20081014
  5. SYMBICORT [Concomitant]
     Dosage: UNK UNK, PRN
     Dates: start: 20081014
  6. ALBUTEROL [Concomitant]
     Dosage: 2 PUFFS AS NEEDED
     Dates: start: 20081014
  7. YAZ [Suspect]
     Route: 048
  8. CLARITIN [Concomitant]
     Dosage: 10 MG, UNK
     Dates: start: 20081014

REACTIONS (2)
  - DEEP VEIN THROMBOSIS [None]
  - PULMONARY EMBOLISM [None]
